FAERS Safety Report 9507503 (Version 1)
Quarter: 2013Q3

REPORT INFORMATION
  Report Type: Spontaneous
  Country: US (occurrence: None)
  Receive Date: 20130904
  Receipt Date: 20130904
  Transmission Date: 20140515
  Serious: Yes (Other)
  Sender: FDA-Public Use
  Company Number: NSR_01236_2013

PATIENT
  Age: 59 Year
  Sex: Male

DRUGS (8)
  1. GEMFIBROZIL [Suspect]
     Indication: PRODUCT USED FOR UNKNOWN INDICATION
     Dates: start: 2006, end: 201108
  2. OMEPRAZOLE [Suspect]
     Indication: GASTROOESOPHAGEAL REFLUX DISEASE
     Dates: start: 2010, end: 201108
  3. OMEPRAZOLE [Suspect]
     Indication: DYSPHAGIA
     Dates: start: 2010, end: 201108
  4. ATORVASTATIN [Suspect]
     Indication: PRODUCT USED FOR UNKNOWN INDICATION
     Dates: start: 2006, end: 201108
  5. AMLODIPINE [Concomitant]
  6. ASPIRIN [Concomitant]
  7. SODIUM NITRATE [Concomitant]
  8. METOPROLOL [Concomitant]

REACTIONS (9)
  - Asthenia [None]
  - Myalgia [None]
  - Mobility decreased [None]
  - Muscular weakness [None]
  - Blood creatine phosphokinase increased [None]
  - Myopathy [None]
  - Muscle necrosis [None]
  - Polymyositis [None]
  - Drug interaction [None]
